FAERS Safety Report 9526889 (Version 1)
Quarter: 2013Q3

REPORT INFORMATION
  Report Type: Spontaneous
  Country: US (occurrence: US)
  Receive Date: 20130916
  Receipt Date: 20130916
  Transmission Date: 20140515
  Serious: No
  Sender: FDA-Public Use
  Company Number: US-PFIZER INC-2013263051

PATIENT
  Sex: Female

DRUGS (4)
  1. LEVOXYL [Suspect]
     Dosage: 112 UG, UNK
  2. LEVOXYL [Suspect]
     Dosage: 100 UG, UNK
  3. LEVOXYL [Suspect]
     Dosage: 88 UG, UNK
  4. LEVOTHYROXINE SODIUM [Suspect]
     Dosage: UNK

REACTIONS (7)
  - Blood cholesterol decreased [Unknown]
  - Weight decreased [Unknown]
  - Blood follicle stimulating hormone decreased [Unknown]
  - Blood thyroid stimulating hormone decreased [Unknown]
  - Anxiety [Unknown]
  - Fatigue [Unknown]
  - Drug ineffective [Unknown]
